FAERS Safety Report 11391118 (Version 1)
Quarter: 2015Q3

REPORT INFORMATION
  Report Type: Spontaneous
  Country: US (occurrence: US)
  Receive Date: 20150818
  Receipt Date: 20150818
  Transmission Date: 20151125
  Serious: Yes (Life-Threatening)
  Sender: FDA-Public Use
  Company Number: US-ASTRAZENECA-2015SE78853

PATIENT
  Age: 50 Year
  Sex: Female
  Weight: 72 kg

DRUGS (15)
  1. GEODON [Suspect]
     Active Substance: ZIPRASIDONE HYDROCHLORIDE\ZIPRASIDONE MESYLATE
     Indication: BIPOLAR DISORDER
     Dosage: 80 MG, ONE IN THE MORNING, ONE AT BEDTIME
     Route: 065
     Dates: start: 2010
  2. TRIHEXYPHENIDYL [Concomitant]
     Active Substance: TRIHEXYPHENIDYL
     Indication: DYSTONIA
  3. PROPRANOLOL [Concomitant]
     Active Substance: PROPRANOLOL\PROPRANOLOL HYDROCHLORIDE
     Dates: start: 2007
  4. SYNTHROID [Concomitant]
     Active Substance: LEVOTHYROXINE SODIUM
     Dosage: 1 DF ON AN EMPTY STOMACH
     Dates: start: 2007
  5. PRAZOSIN [Suspect]
     Active Substance: PRAZOSIN
     Indication: SLEEP DISORDER
     Dosage: TWO OR THREE AT BEDTIME
     Route: 065
     Dates: start: 2014
  6. TEGRETOL [Concomitant]
     Active Substance: CARBAMAZEPINE
     Route: 048
  7. ZOLOFT [Suspect]
     Active Substance: SERTRALINE HYDROCHLORIDE
     Indication: DEPRESSION
     Route: 065
     Dates: start: 2006, end: 2007
  8. DEPAKOTE [Suspect]
     Active Substance: DIVALPROEX SODIUM
     Route: 065
     Dates: start: 200702, end: 2010
  9. SEROQUEL [Suspect]
     Active Substance: QUETIAPINE FUMARATE
     Route: 048
     Dates: start: 200702, end: 2010
  10. PRISTIQ EXTENDED RELEASE [Suspect]
     Active Substance: DESVENLAFAXINE SUCCINATE
     Indication: DEPRESSION
     Route: 065
  11. PRISTIQ EXTENDED RELEASE [Suspect]
     Active Substance: DESVENLAFAXINE SUCCINATE
     Indication: DEPRESSION
     Dosage: TWO 50 MG PILLS PER DAY, ONE IN THE MORNING AND ONE IN THE EVENING
     Route: 065
  12. LAMICTAL [Concomitant]
     Active Substance: LAMOTRIGINE
  13. PRISTIQ EXTENDED RELEASE [Suspect]
     Active Substance: DESVENLAFAXINE SUCCINATE
     Indication: DEPRESSION
     Route: 065
  14. XANAX [Concomitant]
     Active Substance: ALPRAZOLAM
     Dosage: EVERY 4 HOURS AT 6, 10, 2, 6, AND BEDTIME,
     Dates: start: 2007
  15. TRIHEXYPHENIDYL [Concomitant]
     Active Substance: TRIHEXYPHENIDYL
     Indication: DYSKINESIA

REACTIONS (7)
  - Drug dependence [Recovered/Resolved]
  - Dyskinesia [Not Recovered/Not Resolved]
  - Suicide attempt [Unknown]
  - Head discomfort [Recovered/Resolved]
  - Gait disturbance [Unknown]
  - Drug withdrawal syndrome [Recovered/Resolved]
  - Dystonia [Not Recovered/Not Resolved]

NARRATIVE: CASE EVENT DATE: 2014
